FAERS Safety Report 5520717-5 (Version None)
Quarter: 2007Q4

REPORT INFORMATION
  Report Type: 
  Country: None (occurrence: None)
  Receive Date: 20071119
  Receipt Date: 20071107
  Transmission Date: 20080405
  Serious: Yes (Other)
  Sender: FDA-Public Use
  Company Number: JP-PFIZER INC-2007094373

PATIENT
  Age: 55 Year
  Sex: Male

DRUGS (2)
  1. NORVASC [Suspect]
     Dosage: DAILY DOSE:5MG
     Route: 048
  2. INSULIN [Concomitant]

REACTIONS (6)
  - DEPRESSED MOOD [None]
  - DIARRHOEA [None]
  - FEELING ABNORMAL [None]
  - FEELING HOT [None]
  - HYPERTENSION [None]
  - MALAISE [None]
